FAERS Safety Report 5846162-0 (Version None)
Quarter: 2008Q3

REPORT INFORMATION
  Report Type: 
  Country: None (occurrence: None)
  Receive Date: 20080814
  Receipt Date: 20080806
  Transmission Date: 20090109
  Serious: Yes (Hospitalization)
  Sender: FDA-Public Use
  Company Number: JP-PFIZER INC-2008066255

PATIENT
  Sex: Male
  Weight: 72.6 kg

DRUGS (14)
  1. SU-011,248 [Suspect]
     Indication: COLORECTAL CANCER
     Route: 048
  2. IRINOTECAN HCL [Suspect]
     Indication: COLORECTAL CANCER
     Route: 042
  3. CALCIUM FOLINATE [Suspect]
     Indication: COLORECTAL CANCER
     Route: 042
  4. FLUOROURACIL [Suspect]
     Indication: COLORECTAL CANCER
     Route: 042
  5. FLUOROURACIL [Suspect]
     Route: 042
  6. CILNIDIPINE [Concomitant]
     Route: 048
  7. OLMESARTAN MEDOXOMIL [Concomitant]
     Route: 048
  8. REBAMIPIDE [Concomitant]
     Route: 048
  9. RABEPRAZOLE SODIUM [Concomitant]
     Route: 048
  10. CERNILTON [Concomitant]
     Route: 048
  11. TAMSULOSIN HCL [Concomitant]
     Route: 048
  12. TRIBENOSIDE [Concomitant]
     Route: 054
  13. ALL OTHER THERAPEUTIC PRODUCTS [Concomitant]
     Route: 061
  14. MOSAPRIDE CITRATE [Concomitant]
     Route: 048

REACTIONS (4)
  - ANOREXIA [None]
  - LOSS OF CONSCIOUSNESS [None]
  - NAUSEA [None]
  - VOMITING [None]
